FAERS Safety Report 19417657 (Version 1)
Quarter: 2021Q2

REPORT INFORMATION
  Report Type: Other
  Country: FR (occurrence: FR)
  Receive Date: 20210615
  Receipt Date: 20210615
  Transmission Date: 20210717
  Serious: Yes (Death, Life-Threatening, Hospitalization)
  Sender: FDA-Public Use
  Company Number: FR-ROCHE-2847836

PATIENT

DRUGS (11)
  1. RITUXIMAB. [Suspect]
     Active Substance: RITUXIMAB
     Indication: NEUROMYELITIS OPTICA SPECTRUM DISORDER
     Dosage: 1 G
     Route: 065
     Dates: start: 2012
  2. RITUXIMAB. [Suspect]
     Active Substance: RITUXIMAB
     Dosage: 1 G, EVERY 6 MONTHS FOR 7 YEARS AS MAINTENANCE THERAPY
     Route: 065
  3. RITUXIMAB. [Suspect]
     Active Substance: RITUXIMAB
     Dosage: 1 G, EVERY 6 MONTHS FOR 7 YEARS AS MAINTENANCE THERAPY
     Route: 065
  4. RITUXIMAB. [Suspect]
     Active Substance: RITUXIMAB
     Dosage: 11TH AND FINAL RITUXIMAB INFUSION: 1 G
     Route: 065
     Dates: start: 201909
  5. RITUXIMAB. [Suspect]
     Active Substance: RITUXIMAB
     Dosage: 1 G, EVERY 6 MONTHS FOR 7 YEARS AS MAINTENANCE THERAPY
     Route: 065
  6. RITUXIMAB. [Suspect]
     Active Substance: RITUXIMAB
     Dosage: 1 G, EVERY 6 MONTHS FOR 7 YEARS AS MAINTENANCE THERAPY
     Route: 065
  7. RITUXIMAB. [Suspect]
     Active Substance: RITUXIMAB
     Dosage: 1 G
     Route: 065
  8. RITUXIMAB. [Suspect]
     Active Substance: RITUXIMAB
     Dosage: 1 G, EVERY 6 MONTHS FOR 7 YEARS AS MAINTENANCE THERAPY
     Route: 065
  9. RITUXIMAB. [Suspect]
     Active Substance: RITUXIMAB
     Dosage: ON DAY 15
     Route: 065
  10. RITUXIMAB. [Suspect]
     Active Substance: RITUXIMAB
     Dosage: 1 G, EVERY 6 MONTHS FOR 7 YEARS AS MAINTENANCE THERAPY
     Route: 065
  11. RITUXIMAB. [Suspect]
     Active Substance: RITUXIMAB
     Dosage: 1 G, EVERY 6 MONTHS FOR 7 YEARS AS MAINTENANCE THERAPY
     Route: 065

REACTIONS (9)
  - Cardiogenic shock [Fatal]
  - Cardiac arrest [Fatal]
  - Coxsackie viral infection [Fatal]
  - Hypogammaglobulinaemia [Fatal]
  - Ejection fraction decreased [Fatal]
  - Ventricular tachycardia [Fatal]
  - Off label use [Unknown]
  - Myocardial oedema [Fatal]
  - Enterovirus myocarditis [Fatal]

NARRATIVE: CASE EVENT DATE: 201911
